FAERS Safety Report 16001761 (Version 2)
Quarter: 2019Q1

REPORT INFORMATION
  Report Type: Spontaneous
  Country: US (occurrence: US)
  Receive Date: 20190225
  Receipt Date: 20190305
  Transmission Date: 20190418
  Serious: No
  Sender: FDA-Public Use
  Company Number: US-ALLERGAN-1849707US

PATIENT
  Age: 56 Year
  Sex: Female

DRUGS (9)
  1. SAVELLA [Suspect]
     Active Substance: MILNACIPRAN HYDROCHLORIDE
     Dosage: 25 MG, BID
     Route: 048
     Dates: start: 20180716, end: 20181002
  2. NORCO [Suspect]
     Active Substance: ACETAMINOPHEN\HYDROCODONE BITARTRATE
     Indication: PAIN
     Dosage: 1 DF, QHS EVERY 4 TO 6 HOURS
     Route: 048
     Dates: start: 20180316, end: 20180924
  3. HYDROXYCHLOROQUINE [Concomitant]
     Active Substance: HYDROXYCHLOROQUINE
     Dosage: 2 DF, QD
     Route: 048
     Dates: start: 20171218
  4. LYRICA [Concomitant]
     Active Substance: PREGABALIN
     Dosage: 300 MG, BID
     Route: 048
     Dates: start: 20180316, end: 20180919
  5. MOBIC [Concomitant]
     Active Substance: MELOXICAM
     Dosage: 15 MG, QD WITH BREAKFAST
     Route: 048
     Dates: start: 20180105
  6. SAVELLA [Suspect]
     Active Substance: MILNACIPRAN HYDROCHLORIDE
     Indication: FIBROMYALGIA
     Dosage: 50 MG, BID
     Route: 048
     Dates: start: 20181002
  7. SAVELLA [Suspect]
     Active Substance: MILNACIPRAN HYDROCHLORIDE
     Dosage: 12.5 MG, BID
     Route: 048
     Dates: start: 20180521, end: 20180716
  8. APREMILAST [Concomitant]
     Active Substance: APREMILAST
     Dosage: 30 MG, BID TAKE WITH OR WITHOUT FOOD
     Route: 048
     Dates: start: 20180216
  9. CHOLECALCIFEROL [Concomitant]
     Active Substance: CHOLECALCIFEROL
     Dosage: 2000 UNITS, QD WITH A MEAL
     Route: 048
     Dates: start: 20161102

REACTIONS (1)
  - Osteoarthritis [Unknown]

NARRATIVE: CASE EVENT DATE: 20180521
